FAERS Safety Report 9775818 (Version 3)
Quarter: 2014Q1

REPORT INFORMATION
  Report Type: Spontaneous
  Country: US (occurrence: US)
  Receive Date: 20131220
  Receipt Date: 20140310
  Transmission Date: 20141002
  Serious: Yes (Hospitalization)
  Sender: FDA-Public Use
  Company Number: US-GLAXOSMITHKLINE-A1053918A

PATIENT
  Age: 85 Year
  Sex: Male

DRUGS (3)
  1. ADVAIR [Suspect]
     Indication: RESPIRATORY DISORDER
     Dosage: 1PUFF TWICE PER DAY
     Route: 055
  2. TOPROL [Concomitant]
  3. SIMVASTATIN [Concomitant]

REACTIONS (6)
  - Dyspnoea [Recovered/Resolved]
  - Infection [Recovered/Resolved]
  - Surgery [Recovered/Resolved]
  - Drug ineffective [Recovered/Resolved]
  - Product quality issue [Unknown]
  - Suture removal [Unknown]
